FAERS Safety Report 20559013 (Version 2)
Quarter: 2022Q4

REPORT INFORMATION
  Report Type: Spontaneous
  Country: US (occurrence: US)
  Receive Date: 20220307
  Receipt Date: 20221021
  Transmission Date: 20230113
  Serious: Yes (Disabling, Other)
  Sender: FDA-Public Use
  Company Number: US-ORGANON-O2203USA000328

PATIENT
  Sex: Male

DRUGS (5)
  1. SINGULAIR [Suspect]
     Active Substance: MONTELUKAST SODIUM
     Indication: Asthma
     Dosage: 1 TABLET ORALLY DAILY
     Route: 048
     Dates: start: 2000, end: 2012
  2. ALBUTEROL SULFATE [Suspect]
     Active Substance: ALBUTEROL SULFATE
     Indication: Dyspnoea
     Dosage: 2 PUFFS, EVERY 4 HOURS AS NEEDED
  3. TETRACYCLINE [Suspect]
     Active Substance: TETRACYCLINE
     Dosage: TAKE 1 CAPSULE ORALLY 2 TIMES A DAY
     Route: 048
  4. VICODIN [Suspect]
     Active Substance: ACETAMINOPHEN\HYDROCODONE BITARTRATE
     Indication: Pain
     Dosage: 1-2 P.O. Q.4 HOURS P.R.N.
     Route: 048
  5. PROAIR HFA [Suspect]
     Active Substance: ALBUTEROL SULFATE
     Indication: Asthma
     Dosage: 2 PUFFS ORALLY 4 TIMES A DAY

REACTIONS (6)
  - Neuropsychiatric symptoms [Not Recovered/Not Resolved]
  - Major depression [Recovering/Resolving]
  - Dyspnoea [Unknown]
  - Chest discomfort [Unknown]
  - Dizziness [Unknown]
  - Panic attack [Unknown]
